FAERS Safety Report 6388648-9 (Version None)
Quarter: 2009Q4

REPORT INFORMATION
  Report Type: 
  Country: None (occurrence: None)
  Receive Date: 20091005
  Receipt Date: 20090923
  Transmission Date: 20100525
  Serious: Yes (Other)
  Sender: FDA-Public Use
  Company Number: US-BAYER-200934119NA

PATIENT
  Age: 81 Year
  Sex: Female

DRUGS (1)
  1. ULTRAVIST 300 [Suspect]
     Indication: COMPUTERISED TOMOGRAM
     Dosage: TOTAL DAILY DOSE: 100 ML  UNIT DOSE: 100 ML
     Route: 042
     Dates: start: 20090923, end: 20090923

REACTIONS (6)
  - CHEST DISCOMFORT [None]
  - EYE PRURITUS [None]
  - EYE SWELLING [None]
  - HYPERTENSION [None]
  - LACRIMATION INCREASED [None]
  - URTICARIA [None]
